FAERS Safety Report 16789149 (Version 1)
Quarter: 2019Q3

REPORT INFORMATION
  Report Type: Report from Study
  Country: None (occurrence: BR)
  Receive Date: 20190910
  Receipt Date: 20190910
  Transmission Date: 20191005
  Serious: Yes (Other)
  Sender: FDA-Public Use
  Company Number: BR-ABBVIE-19K-020-2912212-00

PATIENT
  Age: 44 Year
  Sex: Female
  Weight: 80 kg

DRUGS (1)
  1. HUMIRA [Suspect]
     Active Substance: ADALIMUMAB
     Indication: RHEUMATOID ARTHRITIS
     Route: 058
     Dates: start: 20180129

REACTIONS (16)
  - Spondylitis [Unknown]
  - Cardiac disorder [Unknown]
  - Seizure [Recovered/Resolved]
  - Dry skin [Unknown]
  - Stress [Unknown]
  - Angina pectoris [Unknown]
  - Vascular pain [Unknown]
  - Fall [Unknown]
  - Dandruff [Unknown]
  - Anger [Unknown]
  - Bursitis [Unknown]
  - Tendonitis [Unknown]
  - Intervertebral disc protrusion [Unknown]
  - Vertebral column mass [Unknown]
  - Osteoarthritis [Unknown]
  - Headache [Unknown]

NARRATIVE: CASE EVENT DATE: 20190831
